FAERS Safety Report 6454217-5 (Version None)
Quarter: 2009Q4

REPORT INFORMATION
  Report Type: 
  Country: None (occurrence: None)
  Receive Date: 20091124
  Receipt Date: 20091116
  Transmission Date: 20100525
  Serious: Yes (Hospitalization)
  Sender: FDA-Public Use
  Company Number: CA-BRISTOL-MYERS SQUIBB COMPANY-14859516

PATIENT
  Age: 53 Year
  Sex: Male

DRUGS (1)
  1. CEFPROZIL [Suspect]
     Indication: ARTHROPOD BITE

REACTIONS (5)
  - ACUTE GENERALISED EXANTHEMATOUS PUSTULOSIS [None]
  - ACUTE RESPIRATORY FAILURE [None]
  - EJECTION FRACTION DECREASED [None]
  - PULMONARY OEDEMA [None]
  - SYSTEMIC INFLAMMATORY RESPONSE SYNDROME [None]
